FAERS Safety Report 14954768 (Version 5)
Quarter: 2018Q3

REPORT INFORMATION
  Report Type: Spontaneous
  Country: JP (occurrence: JP)
  Receive Date: 20180530
  Receipt Date: 20180904
  Transmission Date: 20181010
  Serious: Yes (Death, Other)
  Sender: FDA-Public Use
  Company Number: PHJP2018JP011623

PATIENT
  Age: 75 Year
  Sex: Male

DRUGS (2)
  1. EXJADE [Suspect]
     Active Substance: DEFERASIROX
     Indication: APLASIA PURE RED CELL
     Dosage: 500 MG, QD
     Route: 048
     Dates: start: 20120306, end: 20120314
  2. EXJADE [Suspect]
     Active Substance: DEFERASIROX
     Dosage: 1000 MG, QD
     Route: 048
     Dates: start: 20120315, end: 20120319

REACTIONS (9)
  - Iron overload [Fatal]
  - Drug eruption [Recovered/Resolved]
  - Altered state of consciousness [Fatal]
  - Concomitant disease progression [Fatal]
  - Dermatitis exfoliative generalised [Recovered/Resolved]
  - Blood pressure decreased [Fatal]
  - Heart rate decreased [Fatal]
  - Multiple organ dysfunction syndrome [Fatal]
  - Generalised erythema [Unknown]

NARRATIVE: CASE EVENT DATE: 20120316
